FAERS Safety Report 18587075 (Version 2)
Quarter: 2022Q3

REPORT INFORMATION
  Report Type: Spontaneous
  Country: PL (occurrence: PL)
  Receive Date: 20201207
  Receipt Date: 20220919
  Transmission Date: 20221027
  Serious: Yes (Other)
  Sender: FDA-Public Use
  Company Number: PL-NOVARTISPH-NVSC2020PL316787

PATIENT
  Age: 56 Year
  Sex: Female

DRUGS (5)
  1. RYDAPT [Suspect]
     Active Substance: MIDOSTAURIN
     Indication: Acute myeloid leukaemia
     Dosage: 25 MG, QD
     Route: 065
  2. RYDAPT [Suspect]
     Active Substance: MIDOSTAURIN
     Dosage: UNK
     Route: 065
     Dates: start: 202004
  3. VORICONAZOLE [Suspect]
     Active Substance: VORICONAZOLE
     Indication: Product used for unknown indication
     Dosage: UNK
     Route: 065
  4. METHOTREXATE SODIUM [Concomitant]
     Active Substance: METHOTREXATE SODIUM
     Indication: Product used for unknown indication
     Dosage: (HIGH DOSE)
     Route: 065
  5. CYTARABINE [Concomitant]
     Active Substance: CYTARABINE
     Indication: Product used for unknown indication
     Dosage: UNK
     Route: 065

REACTIONS (13)
  - Bronchopulmonary aspergillosis [Unknown]
  - Enterococcal infection [Unknown]
  - Staphylococcal infection [Unknown]
  - Deep vein thrombosis [Unknown]
  - Drug-induced liver injury [Unknown]
  - Acute kidney injury [Unknown]
  - Cyanosis [Unknown]
  - Oedema peripheral [Unknown]
  - Enterobacter sepsis [Unknown]
  - Liver sarcoidosis [Unknown]
  - Acute graft versus host disease [Unknown]
  - Escherichia sepsis [Unknown]
  - Pneumonia [Unknown]
